FAERS Safety Report 8749502 (Version 2)
Quarter: 2012Q4

REPORT INFORMATION
  Report Type: Spontaneous
  Country: JP (occurrence: None)
  Receive Date: 20120809
  Receipt Date: 20120830
  Transmission Date: 20130627
  Serious: Yes (Death)
  Sender: FDA-Public Use
  Company Number: JP-2012-15956

PATIENT
  Age: 89 Year
  Sex: Female
  Weight: 48 kg

DRUGS (7)
  1. SAMSCA [Suspect]
     Indication: FLUID RETENTION
     Dosage: 15 MG MILLIGRAM(S), QAM, ORAL
     Route: 048
     Dates: start: 20120626, end: 20120701
  2. CARVEDILOL [Concomitant]
  3. MAGMITT (MAGNESIUM OXIDE) [Concomitant]
  4. WARFARIN SODIUM [Concomitant]
  5. LEVOFLOXACIN [Concomitant]
  6. PURSENNID (SENNOSIDE A+B CALCIUM) [Concomitant]
  7. LASIX (FUROSEMIDE) [Concomitant]

REACTIONS (6)
  - Hypernatraemia [None]
  - Aortic valve stenosis [None]
  - Cardiac failure [None]
  - Condition aggravated [None]
  - Blood urea increased [None]
  - Urine output decreased [None]
